FAERS Safety Report 5512383-X (Version None)
Quarter: 2007Q4

REPORT INFORMATION
  Report Type: 
  Country: None (occurrence: None)
  Receive Date: 20071108
  Receipt Date: 20071102
  Transmission Date: 20080405
  Serious: Yes (Hospitalization)
  Sender: FDA-Public Use
  Company Number: 163-21880-07100795

PATIENT
  Age: 75 Year
  Sex: Male

DRUGS (2)
  1. REVLIMID [Suspect]
     Indication: MULTIPLE MYELOMA
     Dosage: 10 MG, 1 IN 1 D, ORAL, 5 MG 1 IN 1 D, ORAL
     Route: 048
     Dates: start: 20061128
  2. REVLIMID [Suspect]
     Indication: MULTIPLE MYELOMA
     Dosage: 10 MG, 1 IN 1 D, ORAL, 5 MG 1 IN 1 D, ORAL
     Route: 048
     Dates: start: 20070913

REACTIONS (2)
  - CHOLELITHIASIS [None]
  - DIALYSIS [None]
